FAERS Safety Report 24006663 (Version 1)
Quarter: 2024Q2

REPORT INFORMATION
  Report Type: Spontaneous
  Country: DE (occurrence: DE)
  Receive Date: 20240624
  Receipt Date: 20240624
  Transmission Date: 20240716
  Serious: Yes (Death, Other)
  Sender: FDA-Public Use
  Company Number: DE-INCYTE CORPORATION-2024IN006697

PATIENT

DRUGS (2)
  1. TAFASITAMAB [Suspect]
     Active Substance: TAFASITAMAB
     Indication: Diffuse large B-cell lymphoma
     Dosage: 12 MILLIGRAM/KILOGRAM
     Route: 065
  2. LENALIDOMIDE [Suspect]
     Active Substance: LENALIDOMIDE
     Indication: Diffuse large B-cell lymphoma
     Dosage: 20 MILLIGRAM
     Route: 065

REACTIONS (6)
  - Death [Fatal]
  - Diffuse large B-cell lymphoma [Unknown]
  - Thrombocytopenia [Unknown]
  - Leukopenia [Unknown]
  - Rash [Unknown]
  - Disease progression [Unknown]

NARRATIVE: CASE EVENT DATE: 20231101
